FAERS Safety Report 21106195 (Version 1)
Quarter: 2022Q3

REPORT INFORMATION
  Report Type: Spontaneous
  Country: DE (occurrence: DE)
  Receive Date: 20220720
  Receipt Date: 20220720
  Transmission Date: 20221026
  Serious: Yes (Hospitalization)
  Sender: FDA-Public Use
  Company Number: DE-JNJFOC-20220724580

PATIENT
  Age: 55 Year
  Sex: Male

DRUGS (1)
  1. MINOXIDIL [Suspect]
     Active Substance: MINOXIDIL
     Indication: Alopecia
     Dosage: 1 G FOAM ONCE PER DAY/ TWO DAYS LONG
     Route: 065
     Dates: start: 20220709

REACTIONS (10)
  - Respiratory disorder [Recovering/Resolving]
  - Application site pustules [Recovering/Resolving]
  - Cardiac disorder [Recovering/Resolving]
  - Hot flush [Recovering/Resolving]
  - Product administered to patient of inappropriate age [Recovering/Resolving]
  - Inappropriate schedule of product administration [Recovering/Resolving]
  - Underdose [Unknown]
  - Swelling face [Recovering/Resolving]
  - Application site erythema [Recovering/Resolving]
  - Headache [Recovering/Resolving]

NARRATIVE: CASE EVENT DATE: 20220709
